FAERS Safety Report 25717596 (Version 1)
Quarter: 2025Q3

REPORT INFORMATION
  Report Type: Spontaneous
  Country: US (occurrence: US)
  Receive Date: 20250822
  Receipt Date: 20250822
  Transmission Date: 20251021
  Serious: No
  Sender: IPSEN BIOPHARMACEUTICALS, INC.
  Company Number: US-IPSEN Group, Research and Development-2025-20321

PATIENT
  Age: 42 Year
  Sex: Female

DRUGS (4)
  1. IQIRVO [Suspect]
     Active Substance: ELAFIBRANOR
     Indication: Enzyme level abnormal
     Dates: start: 202506
  2. IQIRVO [Suspect]
     Active Substance: ELAFIBRANOR
     Indication: Off label use
  3. OCALIVA [Concomitant]
     Active Substance: OBETICHOLIC ACID
     Indication: Primary biliary cholangitis
  4. OCALIVA [Concomitant]
     Active Substance: OBETICHOLIC ACID
     Indication: Hepatic enzyme increased

REACTIONS (2)
  - Off label use [Unknown]
  - Humerus fracture [Unknown]

NARRATIVE: CASE EVENT DATE: 20250601
